FAERS Safety Report 24130342 (Version 4)
Quarter: 2024Q4

REPORT INFORMATION
  Report Type: Spontaneous
  Country: JP (occurrence: JP)
  Receive Date: 20240724
  Receipt Date: 20241216
  Transmission Date: 20250114
  Serious: Yes (Death, Life-Threatening, Other)
  Sender: GLAXOSMITHKLINE
  Company Number: JP-GSKJP-JP2024JPN090279AA

PATIENT

DRUGS (35)
  1. DAPRODUSTAT [Suspect]
     Active Substance: DAPRODUSTAT
     Indication: Nephrogenic anaemia
     Dosage: 2 MG, 1D
     Route: 048
     Dates: start: 20230517, end: 20230718
  2. METHYLCOBALAMIN [Concomitant]
     Active Substance: METHYLCOBALAMIN
     Indication: Neuropathy peripheral
     Dosage: 0.5 ?G, TID
     Route: 048
     Dates: end: 20230525
  3. WARFARIN [Concomitant]
     Active Substance: WARFARIN
     Indication: Arterial occlusive disease
     Dosage: 1.75 MG, 1D
     Route: 048
     Dates: end: 20230507
  4. AMLODIPINE [Concomitant]
     Active Substance: AMLODIPINE BESYLATE
     Indication: Hypertension
     Dosage: 5 MG, 1D
     Route: 048
     Dates: start: 20170127, end: 20220616
  5. AMLODIPINE [Concomitant]
     Active Substance: AMLODIPINE BESYLATE
     Dosage: 10 MG, 1D
     Route: 048
     Dates: start: 20220617, end: 20230615
  6. AMLODIPINE [Concomitant]
     Active Substance: AMLODIPINE BESYLATE
     Dosage: 5 MG, 1D
     Route: 048
     Dates: start: 20230616, end: 20230810
  7. AMLODIPINE [Concomitant]
     Active Substance: AMLODIPINE BESYLATE
     Dosage: 2.5 MG, 1D
     Route: 048
     Dates: start: 20230811, end: 20230825
  8. LANSOPRAZOLE [Concomitant]
     Active Substance: LANSOPRAZOLE
     Indication: Gastrooesophageal reflux disease
     Dosage: 15 MG, 1D
     Route: 048
     Dates: start: 20170526
  9. THEO-DUR [Concomitant]
     Active Substance: THEOPHYLLINE ANHYDROUS
     Indication: Asthma
     Dosage: 100 MG, BID
     Route: 048
     Dates: start: 20180105, end: 20230525
  10. MONTELUKAST OD [Concomitant]
     Indication: Asthma
     Dosage: 10 MG, 1D
     Route: 048
     Dates: start: 20180323, end: 20230525
  11. TOCOPHERYL NICOTINATE, D-.ALPHA. [Concomitant]
     Active Substance: TOCOPHERYL NICOTINATE, D-.ALPHA.
     Indication: Hyperlipidaemia
     Dosage: 100 MG, TID
     Route: 048
     Dates: start: 20180517, end: 20230525
  12. FERROUS SULFATE [Concomitant]
     Active Substance: FERROUS SULFATE
     Indication: Anaemia
     Dosage: 105 MG, 1D
     Route: 048
     Dates: start: 20180727
  13. FEXOFENADINE [Concomitant]
     Active Substance: FEXOFENADINE HYDROCHLORIDE
     Indication: Pruritus
     Dosage: 60 MG, BID
     Route: 048
     Dates: start: 20210806, end: 20230525
  14. CALCIUM POLYSTYRENE SULFONATE [Concomitant]
     Active Substance: CALCIUM POLYSTYRENE SULFONATE
     Indication: Hyperkalaemia
     Dosage: 25 MG, 1D
     Route: 048
     Dates: start: 20190519, end: 20230518
  15. CALCIUM POLYSTYRENE SULFONATE [Concomitant]
     Active Substance: CALCIUM POLYSTYRENE SULFONATE
     Dosage: 25 MG, BID
     Route: 048
     Dates: start: 20230519, end: 20230530
  16. CALCIUM POLYSTYRENE SULFONATE [Concomitant]
     Active Substance: CALCIUM POLYSTYRENE SULFONATE
     Dosage: 25 MG, 1D
     Route: 048
     Dates: start: 20230627, end: 20230725
  17. LIMAPROST [Concomitant]
     Active Substance: LIMAPROST
     Indication: Arterial occlusive disease
     Dosage: 50 MG, TID
     Route: 048
     Dates: start: 20190906, end: 20230525
  18. ALLOPURINOL [Concomitant]
     Active Substance: ALLOPURINOL
     Indication: Hyperuricaemia
     Dosage: 100 MG, 1D
     Route: 048
     Dates: start: 20210608, end: 20210701
  19. ALLOPURINOL [Concomitant]
     Active Substance: ALLOPURINOL
     Dosage: 50 MG, 1D
     Route: 048
     Dates: start: 20210702, end: 20230629
  20. ALLOPURINOL [Concomitant]
     Active Substance: ALLOPURINOL
     Dosage: 100 MG, 1D
     Route: 048
     Dates: start: 20230630
  21. ISCOTIN [Concomitant]
     Active Substance: ISONIAZID
     Indication: Lymph node tuberculosis
     Dosage: 300 MG, 1D
     Route: 048
     Dates: start: 20230117, end: 20230714
  22. MYCOBUTIN [Concomitant]
     Active Substance: RIFABUTIN
     Indication: Lymph node tuberculosis
     Dosage: 300 MG, 1D
     Route: 048
     Dates: start: 20230117, end: 20230525
  23. MYCOBUTIN [Concomitant]
     Active Substance: RIFABUTIN
     Dosage: 150 MG, 1D
     Route: 048
     Dates: start: 20230630, end: 20230714
  24. LEVOFLOXACIN [Concomitant]
     Active Substance: LEVOFLOXACIN
     Indication: Lymph node tuberculosis
     Dosage: 250 MG, QOD
     Route: 048
     Dates: start: 20230117, end: 20230525
  25. KREMEZIN [Concomitant]
     Active Substance: ACTIVATED CHARCOAL
     Indication: Chronic kidney disease
     Dosage: 2 G, TID
     Route: 048
     Dates: start: 20230519, end: 20230725
  26. PREDONINE [Concomitant]
     Active Substance: PREDNISOLONE
     Indication: Gout
     Dosage: 5 MG, TID
     Route: 048
     Dates: start: 20230605, end: 20230608
  27. PREDONINE [Concomitant]
     Active Substance: PREDNISOLONE
     Dosage: 5 MG, BID
     Route: 048
     Dates: start: 20230609, end: 20230613
  28. PREDONINE [Concomitant]
     Active Substance: PREDNISOLONE
     Dosage: 5 MG, 1D
     Route: 048
     Dates: start: 20230614, end: 20230618
  29. PREDONINE [Concomitant]
     Active Substance: PREDNISOLONE
     Dosage: 5 MG, TID
     Route: 048
     Dates: start: 20230801, end: 20230805
  30. PREDONINE [Concomitant]
     Active Substance: PREDNISOLONE
     Dosage: 5 MG, BID
     Route: 048
     Dates: start: 20230806, end: 20230810
  31. PREDONINE [Concomitant]
     Active Substance: PREDNISOLONE
     Dosage: 5 MG, 1D
     Route: 048
     Dates: start: 20230811, end: 20230815
  32. AMITIZA [Concomitant]
     Active Substance: LUBIPROSTONE
     Indication: Constipation
     Dosage: 24 ?G, 1D
     Route: 048
     Dates: start: 20230606, end: 20230614
  33. SODIUM PICOSULFATE [Concomitant]
     Active Substance: SODIUM PICOSULFATE
     Indication: Constipation
     Dosage: UNK
     Route: 048
     Dates: start: 20230614
  34. MIRCERA [Concomitant]
     Active Substance: METHOXY POLYETHYLENE GLYCOL-EPOETIN BETA
     Indication: Nephrogenic anaemia
     Dosage: 25 ?G
     Route: 058
     Dates: start: 20230502
  35. OLOPATADINE [Concomitant]
     Active Substance: OLOPATADINE
     Dosage: UNK
     Dates: start: 20170117, end: 20210805

REACTIONS (3)
  - Cerebellar infarction [Fatal]
  - Dysphagia [Not Recovered/Not Resolved]
  - Hypothyroidism [Recovered/Resolved]

NARRATIVE: CASE EVENT DATE: 20230718
